FAERS Safety Report 9050651 (Version 1)
Quarter: 2013Q1

REPORT INFORMATION
  Report Type: Other
  Country: IT (occurrence: IT)
  Receive Date: 20130205
  Receipt Date: 20130205
  Transmission Date: 20140127
  Serious: Yes (Other)
  Sender: FDA-Public Use
  Company Number: IT-WATSON-2013-01402

PATIENT
  Age: 36 None
  Sex: Female

DRUGS (1)
  1. ACYCLOVIR (UNKNOWN) [Suspect]
     Indication: HERPES SIMPLEX
     Dosage: 800 MG, DAILY
     Route: 048
     Dates: start: 20120813, end: 20120816

REACTIONS (2)
  - Drug eruption [Recovering/Resolving]
  - Urticaria [Recovering/Resolving]
